FAERS Safety Report 10077941 (Version 3)
Quarter: 2014Q2

REPORT INFORMATION
  Report Type: Spontaneous
  Country: JP (occurrence: JP)
  Receive Date: 20140415
  Receipt Date: 20140430
  Transmission Date: 20141212
  Serious: Yes (Death)
  Sender: FDA-Public Use
  Company Number: JP-MERCK-1404JPN007171

PATIENT
  Age: 66 Year
  Sex: Male

DRUGS (4)
  1. GLACTIV [Suspect]
     Indication: TYPE 2 DIABETES MELLITUS
     Route: 048
  2. ACTOS [Suspect]
     Indication: TYPE 2 DIABETES MELLITUS
     Route: 048
  3. VOGLIBOSE [Concomitant]
  4. LANSOPRAZOLE [Concomitant]

REACTIONS (1)
  - Interstitial lung disease [Fatal]
